FAERS Safety Report 16688691 (Version 2)
Quarter: 2020Q3

REPORT INFORMATION
  Report Type: Spontaneous
  Country: US (occurrence: US)
  Receive Date: 20190809
  Receipt Date: 20200826
  Transmission Date: 20201102
  Serious: Yes (Other)
  Sender: FDA-Public Use
  Company Number: US-ASTRAZENECA-2019SF10992

PATIENT
  Age: 51 Year
  Sex: Male
  Weight: 136.1 kg

DRUGS (52)
  1. NEXIUM [Suspect]
     Active Substance: ESOMEPRAZOLE MAGNESIUM
     Route: 048
     Dates: start: 2012, end: 2017
  2. NEXIUM [Suspect]
     Active Substance: ESOMEPRAZOLE MAGNESIUM
     Route: 048
     Dates: start: 20170511
  3. LISINOPRIL. [Concomitant]
     Active Substance: LISINOPRIL
  4. LINZESS [Concomitant]
     Active Substance: LINACLOTIDE
  5. METHAZOLAMIDE. [Concomitant]
     Active Substance: METHAZOLAMIDE
  6. DULOXETINE. [Concomitant]
     Active Substance: DULOXETINE
  7. BENZONATATE. [Concomitant]
     Active Substance: BENZONATATE
  8. PREDNISOLONE. [Concomitant]
     Active Substance: PREDNISOLONE
  9. ATROPINE. [Concomitant]
     Active Substance: ATROPINE
  10. VIAGRA [Concomitant]
     Active Substance: SILDENAFIL CITRATE
  11. OXYCODONE [Concomitant]
     Active Substance: OXYCODONE
  12. ERYTHROMYCIN. [Concomitant]
     Active Substance: ERYTHROMYCIN
  13. PILOCARPINE. [Concomitant]
     Active Substance: PILOCARPINE
  14. NEXIUM [Suspect]
     Active Substance: ESOMEPRAZOLE MAGNESIUM
     Route: 048
     Dates: start: 1995, end: 2017
  15. PEPCID [Suspect]
     Active Substance: FAMOTIDINE
     Route: 065
     Dates: start: 201706
  16. CIALIS [Concomitant]
     Active Substance: TADALAFIL
  17. DORZOLAMIDE [Concomitant]
     Active Substance: DORZOLAMIDE
  18. OFLOXACIN. [Concomitant]
     Active Substance: OFLOXACIN
  19. FLUTICASONE. [Concomitant]
     Active Substance: FLUTICASONE
  20. CYCLOBENZAPRINE. [Concomitant]
     Active Substance: CYCLOBENZAPRINE
  21. PREVACID [Suspect]
     Active Substance: LANSOPRAZOLE
     Route: 065
     Dates: start: 1995, end: 2017
  22. LANTUS [Concomitant]
     Active Substance: INSULIN GLARGINE
  23. KETOCONAZOLE. [Concomitant]
     Active Substance: KETOCONAZOLE
  24. NEXIUM [Suspect]
     Active Substance: ESOMEPRAZOLE MAGNESIUM
     Route: 048
     Dates: start: 1995, end: 2017
  25. MOMETASONE [Concomitant]
     Active Substance: MOMETASONE
  26. POLYETHYLENE GLYCOL [Concomitant]
     Active Substance: POLYETHYLENE GLYCOLS
  27. ACETAZOLAMIDE. [Concomitant]
     Active Substance: ACETAZOLAMIDE
  28. TAMIFLU [Concomitant]
     Active Substance: OSELTAMIVIR PHOSPHATE
  29. VIGAMOX [Concomitant]
     Active Substance: MOXIFLOXACIN HYDROCHLORIDE
  30. PROTONIX [Suspect]
     Active Substance: PANTOPRAZOLE SODIUM
     Route: 065
     Dates: start: 1995, end: 2017
  31. NOVOLOG [Concomitant]
     Active Substance: INSULIN ASPART
  32. LUMIGAN [Concomitant]
     Active Substance: BIMATOPROST
  33. CRESTOR [Concomitant]
     Active Substance: ROSUVASTATIN CALCIUM
  34. GENERLAC [Concomitant]
     Active Substance: LACTULOSE
  35. PROAIR HFA [Concomitant]
     Active Substance: ALBUTEROL SULFATE
  36. ONDANSETRON [Concomitant]
     Active Substance: ONDANSETRON
  37. METFORMIN [Concomitant]
     Active Substance: METFORMIN HYDROCHLORIDE
  38. PRILOSEC [Suspect]
     Active Substance: OMEPRAZOLE MAGNESIUM
     Route: 048
     Dates: start: 1995, end: 2017
  39. PROTONIX [Suspect]
     Active Substance: PANTOPRAZOLE SODIUM
     Dosage: GENERIC
     Route: 065
     Dates: start: 2017, end: 2018
  40. LEVEMIR [Concomitant]
     Active Substance: INSULIN DETEMIR
  41. CIPROFLOXACIN. [Concomitant]
     Active Substance: CIPROFLOXACIN
  42. BRIMONIDINE [Concomitant]
     Active Substance: BRIMONIDINE TARTRATE
  43. VICTOZA [Concomitant]
     Active Substance: LIRAGLUTIDE
  44. VICODIN [Concomitant]
     Active Substance: ACETAMINOPHEN\HYDROCODONE BITARTRATE
  45. TRIAMCINOLONE [Concomitant]
     Active Substance: TRIAMCINOLONE
  46. HUMALOG [Concomitant]
     Active Substance: INSULIN LISPRO
  47. AZITHROMYCIN ANHYDROUS. [Concomitant]
     Active Substance: AZITHROMYCIN ANHYDROUS
  48. ADVAIR HFA [Concomitant]
     Active Substance: FLUTICASONE PROPIONATE\SALMETEROL XINAFOATE
  49. GABAPENTIN. [Concomitant]
     Active Substance: GABAPENTIN
  50. CARVEDILOL. [Concomitant]
     Active Substance: CARVEDILOL
  51. HYDROCORTISONE. [Concomitant]
     Active Substance: HYDROCORTISONE
  52. OXYCODONE [Concomitant]
     Active Substance: OXYCODONE

REACTIONS (6)
  - Nephrogenic anaemia [Unknown]
  - Renal failure [Not Recovered/Not Resolved]
  - Chronic kidney disease [Not Recovered/Not Resolved]
  - Hyperparathyroidism secondary [Unknown]
  - Acute kidney injury [Unknown]
  - Renal tubular necrosis [Unknown]

NARRATIVE: CASE EVENT DATE: 2011
